FAERS Safety Report 9387529 (Version 1)
Quarter: 2013Q3

REPORT INFORMATION
  Report Type: Spontaneous
  Country: US (occurrence: US)
  Receive Date: 20130708
  Receipt Date: 20130708
  Transmission Date: 20140515
  Serious: Yes (Other)
  Sender: FDA-Public Use
  Company Number: US-PFIZER INC-2013198882

PATIENT
  Age: 54 Year
  Sex: Male
  Weight: 99.77 kg

DRUGS (12)
  1. NEURONTIN [Suspect]
     Indication: ANXIETY
     Dosage: 400 MG, 1X/DAY
     Dates: start: 2010
  2. NEURONTIN [Suspect]
     Indication: DEPRESSION
  3. ZOLOFT [Suspect]
     Indication: ANXIETY
     Dosage: 100 MG, 1X/DAY
     Dates: start: 2011
  4. ZOLOFT [Suspect]
     Indication: DEPRESSION
  5. LOPRESSOR [Concomitant]
     Dosage: 25 MG, 2X/DAY
  6. ACCUPRIL [Concomitant]
     Dosage: 5 MG, 1X/DAY
  7. KLONOPIN [Concomitant]
     Dosage: 0.5 MG, 3X/DAY
  8. BUSPIRONE [Concomitant]
     Dosage: 5 MG, 2X/DAY
  9. LIPITOR [Concomitant]
     Dosage: 20 MG, 1X/DAY
  10. ASPIRIN [Concomitant]
     Dosage: 81 MG, 1X/DAY
  11. PLAVIX [Concomitant]
     Dosage: UNK
  12. TRAMADOL [Concomitant]
     Dosage: UNK, 2X/DAY

REACTIONS (3)
  - Off label use [Unknown]
  - Chronic obstructive pulmonary disease [Unknown]
  - Feeling abnormal [Recovered/Resolved]
